FAERS Safety Report 10424436 (Version 2)
Quarter: 2014Q4

REPORT INFORMATION
  Report Type: Report from Study
  Country: BR (occurrence: BR)
  Receive Date: 20140902
  Receipt Date: 20141020
  Transmission Date: 20150528
  Serious: Yes (Hospitalization)
  Sender: FDA-Public Use
  Company Number: BR-ABBVIE-14K-020-1276296-00

PATIENT
  Age: 69 Year
  Sex: Male
  Weight: 70 kg

DRUGS (5)
  1. HUMIRA [Suspect]
     Active Substance: ADALIMUMAB
     Route: 058
     Dates: start: 20141010, end: 20141010
  2. HUMIRA [Suspect]
     Active Substance: ADALIMUMAB
     Indication: CROHN^S DISEASE
     Dosage: INDUCTION DOSE
     Route: 058
     Dates: start: 20140812, end: 20140812
  3. HUMIRA [Suspect]
     Active Substance: ADALIMUMAB
     Route: 058
     Dates: start: 20141011, end: 20141011
  4. RIVOTRIL [Concomitant]
     Active Substance: CLONAZEPAM
     Indication: INSOMNIA
  5. HUMIRA [Suspect]
     Active Substance: ADALIMUMAB
     Route: 058

REACTIONS (4)
  - Migraine [Recovered/Resolved]
  - Asthenia [Recovered/Resolved]
  - Confusional state [Recovered/Resolved]
  - Computerised tomogram abnormal [Unknown]

NARRATIVE: CASE EVENT DATE: 2014
